FAERS Safety Report 20193764 (Version 1)
Quarter: 2021Q4

REPORT INFORMATION
  Report Type: Spontaneous
  Country: US (occurrence: None)
  Receive Date: 20211216
  Receipt Date: 20211216
  Transmission Date: 20220303
  Serious: Yes (Hospitalization)
  Sender: FDA-Public Use
  Company Number: None

PATIENT
  Sex: Female
  Weight: 69.1 kg

DRUGS (1)
  1. CISPLATIN [Suspect]
     Active Substance: CISPLATIN

REACTIONS (5)
  - Dizziness [None]
  - Fall [None]
  - Pallor [None]
  - Syncope [None]
  - Pulse absent [None]

NARRATIVE: CASE EVENT DATE: 20210425
